FAERS Safety Report 16149122 (Version 1)
Quarter: 2019Q2

REPORT INFORMATION
  Report Type: Spontaneous
  Country: US (occurrence: US)
  Receive Date: 20190402
  Receipt Date: 20190402
  Transmission Date: 20190711
  Serious: No
  Sender: FDA-Public Use
  Company Number: US-ARBOR PHARMACEUTICALS, LLC-US-2018ARB001138

PATIENT
  Sex: Female

DRUGS (3)
  1. SKLICE [Suspect]
     Active Substance: IVERMECTIN
     Indication: PRODUCT USED FOR UNKNOWN INDICATION
     Dosage: UNK UNK, SINGLE
     Dates: start: 2018, end: 2018
  2. SKLICE [Suspect]
     Active Substance: IVERMECTIN
     Dosage: UNK, SINGLE
     Dates: start: 2018, end: 2018
  3. SKLICE [Suspect]
     Active Substance: IVERMECTIN
     Dosage: UNK, SINGLE
     Dates: start: 2018, end: 2018

REACTIONS (2)
  - Pruritus [Not Recovered/Not Resolved]
  - Formication [Not Recovered/Not Resolved]

NARRATIVE: CASE EVENT DATE: 2018
